FAERS Safety Report 20710141 (Version 1)
Quarter: 2022Q2

REPORT INFORMATION
  Report Type: Spontaneous
  Country: US (occurrence: US)
  Receive Date: 20220414
  Receipt Date: 20220414
  Transmission Date: 20220720
  Serious: No
  Sender: FDA-Public Use
  Company Number: US-PFIZER INC-202200568241

PATIENT
  Age: 68 Year
  Sex: Female
  Weight: 60.78 kg

DRUGS (1)
  1. CHANTIX [Suspect]
     Active Substance: VARENICLINE TARTRATE
     Indication: Smoking cessation therapy
     Dosage: 1 MG, 2X/DAY
     Route: 048

REACTIONS (3)
  - Illness [Recovering/Resolving]
  - Vomiting [Recovering/Resolving]
  - Wrong technique in product usage process [Unknown]
